FAERS Safety Report 24564633 (Version 1)
Quarter: 2024Q4

REPORT INFORMATION
  Report Type: Spontaneous
  Country: US (occurrence: None)
  Receive Date: 20241029
  Receipt Date: 20241029
  Transmission Date: 20250115
  Serious: Yes (Hospitalization, Other)
  Sender: Public
  Company Number: None

PATIENT
  Age: 43 Year
  Sex: Female

DRUGS (1)
  1. ICATIBANT [Suspect]
     Active Substance: ICATIBANT ACETATE
     Indication: Angioedema
     Dosage: FREQUENCY : TWICE A DAY;?

REACTIONS (5)
  - Seizure [None]
  - Fall [None]
  - Mental disorder [None]
  - Insurance issue [None]
  - Intentional product use issue [None]
